FAERS Safety Report 4470397-5 (Version None)
Quarter: 2004Q3

REPORT INFORMATION
  Report Type: 
  Country: None (occurrence: None)
  Receive Date: 20040910
  Receipt Date: 20040525
  Transmission Date: 20050211
  Serious: Yes (Hospitalization)
  Sender: FDA-Public Use
  Company Number: M03-341-184

PATIENT
  Age: 70 Year
  Sex: Female
  Weight: 42 kg

DRUGS (8)
  1. VELCADE [Suspect]
     Indication: MULTIPLE MYELOMA
     Dosage: 1.8 MG, IV BOLUS
     Route: 040
     Dates: start: 20031024, end: 20031126
  2. THALIDOMIDE [Concomitant]
  3. TAMOXIFEN CITRATE [Concomitant]
  4. CAPTOPRIL [Concomitant]
  5. MORPHINE SULFATE [Concomitant]
  6. PERCOCET [Concomitant]
  7. MEGESTROL ACETATE [Concomitant]
  8. PAROXETINE HYDROCHLORIDE [Concomitant]

REACTIONS (5)
  - BLOOD POTASSIUM DECREASED [None]
  - DIARRHOEA [None]
  - DISEASE PROGRESSION [None]
  - HYPOCALCAEMIA [None]
  - PYREXIA [None]
